FAERS Safety Report 22100163 (Version 3)
Quarter: 2023Q2

REPORT INFORMATION
  Report Type: Spontaneous
  Country: US (occurrence: US)
  Receive Date: 20230315
  Receipt Date: 20230620
  Transmission Date: 20230722
  Serious: Yes (Other)
  Sender: FDA-Public Use
  Company Number: US-Blueprint Medicines Corporation-946

PATIENT
  Sex: Male

DRUGS (3)
  1. AYVAKIT [Suspect]
     Active Substance: AVAPRITINIB
     Indication: Gastrointestinal stromal tumour
     Route: 065
     Dates: start: 20230207
  2. AYVAKIT [Suspect]
     Active Substance: AVAPRITINIB
     Route: 065
     Dates: start: 20230207
  3. AYVAKIT [Suspect]
     Active Substance: AVAPRITINIB
     Route: 065
     Dates: start: 20230207

REACTIONS (20)
  - Haemorrhage [Unknown]
  - Melaena [Unknown]
  - Diarrhoea [Unknown]
  - Vomiting [Unknown]
  - Cognitive disorder [Unknown]
  - Aphasia [Unknown]
  - Oedema peripheral [Unknown]
  - Periorbital oedema [Unknown]
  - Feeling drunk [Unknown]
  - Malaise [Unknown]
  - Anaemia [Unknown]
  - Hair texture abnormal [Unknown]
  - Onychoclasis [Unknown]
  - Vision blurred [Unknown]
  - Headache [Unknown]
  - Taste disorder [Unknown]
  - Odynophagia [Unknown]
  - Constipation [Unknown]
  - Fatigue [Unknown]
  - Product dose omission issue [Unknown]
